FAERS Safety Report 5705814-3 (Version None)
Quarter: 2008Q2

REPORT INFORMATION
  Report Type: 
  Country: None (occurrence: None)
  Receive Date: 20080415
  Receipt Date: 20080408
  Transmission Date: 20081010
  Serious: Yes (Hospitalization, Disabling)
  Sender: FDA-Public Use
  Company Number: GB-ASTRAZENECA-2006GB01246

PATIENT
  Age: 32632 Day
  Sex: Female

DRUGS (7)
  1. NOLVADEX [Suspect]
     Indication: BREAST CANCER
     Route: 048
     Dates: start: 19990121, end: 20040205
  2. BENDROFLUMETHIAZIDE [Concomitant]
  3. LEVOTHYROXINE SODIUM [Concomitant]
  4. CO-CODAMOL [Concomitant]
     Dosage: 8/500
  5. SANDOCAL [Concomitant]
     Dosage: 400
  6. LACTULOSE [Concomitant]
  7. MADOPAR [Concomitant]

REACTIONS (1)
  - OSTEOPOROSIS [None]
